FAERS Safety Report 17694536 (Version 3)
Quarter: 2020Q2

REPORT INFORMATION
  Report Type: Report from Study
  Country: US (occurrence: US)
  Receive Date: 20200422
  Receipt Date: 20200615
  Transmission Date: 20200714
  Serious: Yes (Other)
  Sender: FDA-Public Use
  Company Number: US-PFIZER INC-2020033195

PATIENT
  Age: 74 Year
  Sex: Female

DRUGS (2)
  1. IBRANCE [Suspect]
     Active Substance: PALBOCICLIB
     Indication: BREAST CANCER FEMALE
     Dosage: 125 MG, CYCLIC (DAILY TIMES 21 DAYS, 7 DAYS OFF)
     Route: 048
     Dates: start: 20200121
  2. LETROZOLE. [Concomitant]
     Active Substance: LETROZOLE
     Dosage: UNK, DAILY

REACTIONS (39)
  - Headache [Unknown]
  - Energy increased [Unknown]
  - Hot flush [Unknown]
  - Condition aggravated [Not Recovered/Not Resolved]
  - Flatulence [Unknown]
  - Constipation [Unknown]
  - Anaemia [Unknown]
  - Renal impairment [Unknown]
  - Chest pain [Unknown]
  - Epistaxis [Recovered/Resolved]
  - Dry skin [Not Recovered/Not Resolved]
  - Muscle strain [Recovering/Resolving]
  - Sneezing [Unknown]
  - Sleep disorder [Not Recovered/Not Resolved]
  - Retching [Unknown]
  - Rhinorrhoea [Not Recovered/Not Resolved]
  - Productive cough [Not Recovered/Not Resolved]
  - Neuropathy peripheral [Unknown]
  - Feeling of body temperature change [Unknown]
  - Bone pain [Unknown]
  - Feeling cold [Unknown]
  - Visual impairment [Unknown]
  - Cough [Not Recovered/Not Resolved]
  - Insomnia [Unknown]
  - Alopecia [Recovering/Resolving]
  - Pollakiuria [Unknown]
  - Rash [Recovered/Resolved]
  - Diarrhoea [Unknown]
  - Skin exfoliation [Unknown]
  - Dry mouth [Unknown]
  - Nausea [Unknown]
  - Vision blurred [Not Recovered/Not Resolved]
  - Eye discharge [Unknown]
  - Nasal congestion [Recovered/Resolved]
  - Dizziness [Unknown]
  - Pain in extremity [Unknown]
  - Nasopharyngitis [Unknown]
  - Pruritus [Recovering/Resolving]
  - Renal disorder [Unknown]

NARRATIVE: CASE EVENT DATE: 2020
